FAERS Safety Report 10244380 (Version 1)
Quarter: 2014Q1

REPORT INFORMATION
  Report Type: Spontaneous
  Country: US (occurrence: None)
  Receive Date: 20140306
  Receipt Date: 20140306
  Transmission Date: 20141002
  Serious: Yes (Life-Threatening, Hospitalization)
  Sender: FDA-Public Use
  Company Number: 163-21880-13101354

PATIENT
  Age: 85 Year
  Sex: Female
  Weight: 48.54 kg

DRUGS (7)
  1. REVLIMID (LENALIDOMIDE) (25 MILLIGRAM, CAPSULES) [Suspect]
     Indication: PLASMA CELL MYELOMA
     Route: 048
     Dates: start: 201205
  2. ASPIRIN (ACETYLSALICYLIC ACID) (UNKNOWN) (ACETYLSALICYLIC ACID) [Concomitant]
  3. ISOSORBIDE (UNKNOWN) [Concomitant]
  4. OMEPRAZOLE (UNKNOWN) [Concomitant]
  5. ONDANSETRON (UNKNOWN [Concomitant]
  6. METOPROLOL (UNKNOWN) [Concomitant]
  7. TRAMADOL (UNKNOWN) [Concomitant]

REACTIONS (1)
  - Myocardial infarction [None]
